FAERS Safety Report 9310669 (Version 2)
Quarter: 2013Q2

REPORT INFORMATION
  Report Type: Report from Study
  Country: DE (occurrence: DE)
  Receive Date: 20130527
  Receipt Date: 20130612
  Transmission Date: 20140414
  Serious: Yes (Congenital Anomaly)
  Sender: FDA-Public Use
  Company Number: DE-UCBSA-086389

PATIENT
  Sex: 0

DRUGS (2)
  1. LEVETIRACETAM [Suspect]
     Indication: EPILEPSY
     Dosage: 1000, UNITS UNSPECIFIED
     Route: 064
  2. LAMOTRIGINE [Suspect]
     Dosage: 700, UNIT UNSPECIFIED
     Route: 064

REACTIONS (2)
  - Melanocytic naevus [Unknown]
  - Foetal exposure during pregnancy [Recovered/Resolved]
